FAERS Safety Report 8850831 (Version 1)
Quarter: 2012Q4

REPORT INFORMATION
  Report Type: Report from Study
  Country: DE (occurrence: DE)
  Receive Date: 20121019
  Receipt Date: 20121019
  Transmission Date: 20130627
  Serious: Yes (Other)
  Sender: FDA-Public Use
  Company Number: DE-ASTELLAS-2012EU008947

PATIENT
  Age: 67 Year
  Sex: Male
  Weight: 81 kg

DRUGS (3)
  1. ENZALUTAMIDE [Suspect]
     Indication: PROSTATE CANCER
     Dosage: 160 mg, Unknown/D
     Route: 048
     Dates: start: 20120915, end: 20121004
  2. TILIDIN [Concomitant]
     Indication: PAIN
     Dosage: 200 mg, Unknown/D
     Route: 048
     Dates: start: 20120911, end: 20120915
  3. NOVALGIN                           /06276704/ [Concomitant]
     Indication: PAIN
     Dosage: 3000 mg, Unknown/D
     Route: 048
     Dates: start: 20120911, end: 20120915

REACTIONS (1)
  - Asthma [Recovered/Resolved]
